FAERS Safety Report 15904788 (Version 1)
Quarter: 2019Q1

REPORT INFORMATION
  Report Type: Spontaneous
  Country: US (occurrence: US)
  Receive Date: 20190204
  Receipt Date: 20190204
  Transmission Date: 20190417
  Serious: No
  Sender: FDA-Public Use
  Company Number: US-GLAXOSMITHKLINE-US2019016968

PATIENT
  Age: 74 Year
  Sex: Male

DRUGS (2)
  1. DICLOFENAC SODIUM GEL [Suspect]
     Active Substance: DICLOFENAC SODIUM
     Indication: BACK PAIN
  2. DICLOFENAC SODIUM GEL [Suspect]
     Active Substance: DICLOFENAC SODIUM
     Indication: ARTHRITIS
     Dosage: UNK UNK, BID

REACTIONS (4)
  - Product use in unapproved indication [Unknown]
  - Product administered at inappropriate site [Unknown]
  - Off label use [Unknown]
  - Inappropriate schedule of product administration [Unknown]
